FAERS Safety Report 5972030-X (Version None)
Quarter: 2008Q4

REPORT INFORMATION
  Report Type: 
  Country: None (occurrence: None)
  Receive Date: 20081201
  Receipt Date: 20081118
  Transmission Date: 20090506
  Serious: Yes (Hospitalization)
  Sender: FDA-Public Use
  Company Number: GB-BAUSCH-2008BL004883

PATIENT
  Age: 40 Year
  Sex: Female

DRUGS (5)
  1. PREDNISOLONE [Suspect]
     Indication: IMMUNOSUPPRESSION
  2. AZATHIOPRINE [Suspect]
     Indication: IMMUNOSUPPRESSION
  3. CYCLOSPORINE [Suspect]
     Indication: IMMUNOSUPPRESSION
  4. MYCOPHENOLATE MOFETIL [Suspect]
     Indication: IMMUNOSUPPRESSION
  5. TACROLIMUS [Suspect]
     Indication: IMMUNOSUPPRESSION

REACTIONS (3)
  - BLADDER CANCER [None]
  - HUMAN POLYOMAVIRUS INFECTION [None]
  - KIDNEY TRANSPLANT REJECTION [None]
